FAERS Safety Report 19497828 (Version 1)
Quarter: 2021Q3

REPORT INFORMATION
  Report Type: Spontaneous
  Country: US (occurrence: US)
  Receive Date: 20210706
  Receipt Date: 20210706
  Transmission Date: 20211014
  Serious: No
  Sender: FDA-Public Use
  Company Number: NVSC2021US148461

PATIENT
  Sex: Female

DRUGS (1)
  1. GLEEVEC [Suspect]
     Active Substance: IMATINIB MESYLATE
     Indication: CHRONIC MYELOID LEUKAEMIA
     Dosage: APPROXIMATELY MAY
     Route: 065
     Dates: end: 202008

REACTIONS (3)
  - Hepatic enzyme increased [Unknown]
  - Rash [Unknown]
  - Oedema [Unknown]
